FAERS Safety Report 9669975 (Version 2)
Quarter: 2014Q1

REPORT INFORMATION
  Report Type: Spontaneous
  Country: FR (occurrence: FR)
  Receive Date: 20131105
  Receipt Date: 20140122
  Transmission Date: 20141002
  Serious: Yes (Other)
  Sender: FDA-Public Use
  Company Number: FR-VIIV HEALTHCARE LIMITED-B0936831A

PATIENT
  Age: 28 Year
  Sex: Female

DRUGS (5)
  1. EPIVIR [Suspect]
     Indication: HIV INFECTION
     Dosage: 300MG PER DAY
     Route: 048
     Dates: start: 20130918
  2. RHINADVIL [Suspect]
     Indication: VIRAL INFECTION
     Dates: start: 201310, end: 201310
  3. ZIAGEN [Concomitant]
     Indication: HIV INFECTION
     Dosage: 600MG PER DAY
     Route: 048
     Dates: start: 20130918
  4. INTELENCE [Concomitant]
     Indication: HIV INFECTION
     Dosage: 400MG PER DAY
     Route: 048
     Dates: start: 20130918
  5. STREPSIL [Concomitant]
     Indication: VIRAL INFECTION
     Dates: start: 201310, end: 201310

REACTIONS (1)
  - Neutropenia [Recovered/Resolved]
